FAERS Safety Report 4535573-1 (Version None)
Quarter: 2004Q4

REPORT INFORMATION
  Report Type: 
  Country: None (occurrence: None)
  Receive Date: 20041214
  Receipt Date: 20041110
  Transmission Date: 20050328
  Serious: Yes (Other)
  Sender: FDA-Public Use
  Company Number: 2004091461

PATIENT
  Age: 83 Year
  Sex: Male
  Weight: 106.5953 kg

DRUGS (8)
  1. BEXTRA [Suspect]
     Indication: ARTHRALGIA
     Dosage: 10 MG (10 MG, 1 IN 1 D), ORAL   (THERAPY DATES:   ABOUT THREE MONTHS AGO -   --/--/04)
     Route: 048
     Dates: end: 20040101
  2. OMEPRAZOLE [Concomitant]
  3. FUROSEMIDE [Concomitant]
  4. POTASSIUM (POTASSIUM) [Concomitant]
  5. SOTALOL HCL [Concomitant]
  6. LOVASTATIN [Concomitant]
  7. FLUOXETINE HYDROCHLORIDE [Concomitant]
  8. LISINOPRIL [Concomitant]

REACTIONS (2)
  - BLOOD PRESSURE INCREASED [None]
  - DRUG INEFFECTIVE [None]
